FAERS Safety Report 12294872 (Version 17)
Quarter: 2017Q1

REPORT INFORMATION
  Report Type: Report from Study
  Country: MX (occurrence: MX)
  Receive Date: 20160422
  Receipt Date: 20170227
  Transmission Date: 20170428
  Serious: Yes (Other)
  Sender: FDA-Public Use
  Company Number: PHHY2016MX043755

PATIENT
  Age: 75 Year
  Sex: Female
  Weight: 57 kg

DRUGS (18)
  1. ACLASTA [Suspect]
     Active Substance: ZOLEDRONIC ACID
     Indication: BLOOD CALCIUM ABNORMAL
     Dosage: 1 DF, Q12MO
     Route: 065
     Dates: start: 20160321, end: 20160321
  2. ACLASTA [Suspect]
     Active Substance: ZOLEDRONIC ACID
     Indication: FEMUR FRACTURE
  3. CALCIUM [Concomitant]
     Active Substance: CALCIUM
     Indication: PRODUCT USED FOR UNKNOWN INDICATION
     Dosage: UNK
     Route: 065
  4. PARIET [Concomitant]
     Active Substance: RABEPRAZOLE SODIUM
     Dosage: 30 MG, STOPPED 12 YEARS AGO
     Route: 065
  5. LYSOMUCIL [Concomitant]
     Active Substance: ACETYLCYSTEINE
     Indication: PRODUCT USED FOR UNKNOWN INDICATION
     Route: 065
  6. ACLASTA [Suspect]
     Active Substance: ZOLEDRONIC ACID
     Indication: OSTEOPOROSIS
     Dosage: 1 DF, Q12MO
     Route: 065
  7. PARIET [Concomitant]
     Active Substance: RABEPRAZOLE SODIUM
     Indication: PRODUCT USED FOR UNKNOWN INDICATION
     Dosage: 15 MG, UNK
     Route: 065
  8. ZITROFLAM [Concomitant]
     Indication: PRODUCT USED FOR UNKNOWN INDICATION
     Dosage: 3 OT, UNK
     Route: 065
  9. FLANAX CAPS [Concomitant]
     Active Substance: NAPROXEN
     Indication: PRODUCT USED FOR UNKNOWN INDICATION
     Dosage: 50 MG, (5 DAYS)
     Route: 065
  10. REPAFET [Concomitant]
     Indication: PRODUCT USED FOR UNKNOWN INDICATION
     Route: 065
  11. LOSARTAN. [Concomitant]
     Active Substance: LOSARTAN
     Indication: PRODUCT USED FOR UNKNOWN INDICATION
     Route: 065
  12. CALCITE//CALCIUM CITRATE [Concomitant]
     Indication: OSTEOPOROSIS
     Dosage: UNK
     Route: 065
  13. CALTRATE [Concomitant]
     Active Substance: CALCIUM CARBONATE
     Indication: OSTEOPOROSIS
     Dosage: 1 DF, BID (1 IN THE MORNING AN AT NIGHT)
     Route: 065
  14. KEFLEX [Concomitant]
     Active Substance: CEPHALEXIN
     Indication: PRODUCT USED FOR UNKNOWN INDICATION
     Route: 065
  15. AMLODIPINE [Concomitant]
     Active Substance: AMLODIPINE BESYLATE
     Indication: PRODUCT USED FOR UNKNOWN INDICATION
     Route: 065
  16. ZURCAL [Concomitant]
     Active Substance: PANTOPRAZOLE SODIUM
     Indication: PRODUCT USED FOR UNKNOWN INDICATION
     Route: 065
  17. FOSFOCIL//FOSFOMYCIN SODIUM [Concomitant]
     Indication: PRODUCT USED FOR UNKNOWN INDICATION
     Dosage: 5 OT, UNK (DOUBLE AMPOULES)
     Route: 065
  18. ALGITRIN [Concomitant]
     Indication: PRODUCT USED FOR UNKNOWN INDICATION
     Route: 065

REACTIONS (50)
  - Mental impairment [Unknown]
  - Gastritis [Unknown]
  - Body height decreased [Unknown]
  - Tooth fracture [Unknown]
  - Hypokinesia [Unknown]
  - Pain [Unknown]
  - Blood pressure abnormal [Unknown]
  - Asthenia [Unknown]
  - Weight increased [Unknown]
  - Discomfort [Unknown]
  - Decreased appetite [Unknown]
  - Dysgeusia [Unknown]
  - Dysphonia [Unknown]
  - Urine odour abnormal [Unknown]
  - Memory impairment [Unknown]
  - Abdominal discomfort [Unknown]
  - Clumsiness [Unknown]
  - Anxiety [Unknown]
  - Peripheral swelling [Recovered/Resolved]
  - Somnolence [Unknown]
  - Hypoacusis [Unknown]
  - Dysphagia [Unknown]
  - Eating disorder [Unknown]
  - Burning sensation [Unknown]
  - Influenza [Recovering/Resolving]
  - Device fastener issue [Unknown]
  - Skin discolouration [Unknown]
  - Sinus pain [Unknown]
  - Headache [Unknown]
  - Arthralgia [Unknown]
  - Hyperhidrosis [Unknown]
  - Blood cholesterol increased [Unknown]
  - Weight decreased [Unknown]
  - Fluid retention [Unknown]
  - Stress [Unknown]
  - Blood pressure increased [Recovered/Resolved]
  - Depressed mood [Unknown]
  - Feeling abnormal [Unknown]
  - Nasal septum deviation [Unknown]
  - Hypertension [Unknown]
  - Dizziness [Unknown]
  - Malaise [Unknown]
  - Gastrooesophageal reflux disease [Unknown]
  - Oropharyngeal pain [Not Recovered/Not Resolved]
  - Bone fissure [Unknown]
  - Urinary tract infection [Recovering/Resolving]
  - Fatigue [Unknown]
  - Pain in extremity [Unknown]
  - Hypoaesthesia [Not Recovered/Not Resolved]
  - Ear discomfort [Unknown]

NARRATIVE: CASE EVENT DATE: 2016
